FAERS Safety Report 4521159-1 (Version None)
Quarter: 2004Q4

REPORT INFORMATION
  Report Type: 
  Country: None (occurrence: None)
  Receive Date: 20041208
  Receipt Date: 20041116
  Transmission Date: 20050328
  Serious: Yes (Hospitalization, Disabling)
  Sender: FDA-Public Use
  Company Number: US-MERCK-0411USA02737

PATIENT
  Age: 71 Year
  Sex: Male

DRUGS (10)
  1. ZOCOR [Suspect]
     Indication: BLOOD CHOLESTEROL INCREASED
     Route: 048
     Dates: start: 20040807
  2. PREDNISONE [Concomitant]
     Route: 065
  3. PLAVIX [Concomitant]
     Route: 065
  4. PRINIVIL [Concomitant]
     Route: 048
  5. TOPROL-XL [Concomitant]
     Route: 065
  6. PROTONIX [Concomitant]
     Route: 065
  7. SPIRIVA [Concomitant]
     Route: 065
  8. FORADIL [Concomitant]
     Route: 065
  9. DUONEB [Concomitant]
     Route: 065
  10. INSULIN [Concomitant]
     Route: 065

REACTIONS (3)
  - ABDOMINAL PAIN UPPER [None]
  - MUSCULAR WEAKNESS [None]
  - MYALGIA [None]
